FAERS Safety Report 24062918 (Version 5)
Quarter: 2025Q4

REPORT INFORMATION
  Report Type: Spontaneous
  Country: JP (occurrence: JP)
  Receive Date: 20240709
  Receipt Date: 20251204
  Transmission Date: 20260118
  Serious: Yes (Hospitalization)
  Sender: NOVO NORDISK
  Company Number: JP-NOVOPROD-1247408

PATIENT
  Age: 70 Year
  Sex: Male
  Weight: 90.3 kg

DRUGS (7)
  1. WEGOVY [Suspect]
     Active Substance: SEMAGLUTIDE
     Indication: Obesity
     Dosage: 0.25 MG, QW
     Route: 058
     Dates: start: 202404
  2. WEGOVY [Suspect]
     Active Substance: SEMAGLUTIDE
     Dosage: 0.5 MG, QW
     Route: 058
     Dates: start: 20240422
  3. WEGOVY [Suspect]
     Active Substance: SEMAGLUTIDE
     Dosage: 1.7 MG, QW
     Route: 058
     Dates: end: 20240617
  4. WEGOVY [Suspect]
     Active Substance: SEMAGLUTIDE
     Dosage: UNK
     Route: 058
  5. BEZAFIBRATE [Concomitant]
     Active Substance: BEZAFIBRATE
     Indication: Dyslipidaemia
     Dosage: 400 MG, QD
     Route: 048
     Dates: start: 202204
  6. BENZBROMARONE [Concomitant]
     Active Substance: BENZBROMARONE
     Indication: Hypertension
     Dosage: UNK
     Route: 048
  7. HYDROCHLOROTHIAZIDE\LOSARTAN POTASSIUM [Concomitant]
     Active Substance: HYDROCHLOROTHIAZIDE\LOSARTAN POTASSIUM
     Indication: Hypertension
     Dosage: UNK
     Route: 048
     Dates: start: 202204

REACTIONS (6)
  - Miller Fisher syndrome [Recovering/Resolving]
  - Nasopharyngitis [Unknown]
  - Asthenia [Unknown]
  - Weight decreased [Unknown]
  - Wrong technique in product usage process [Recovered/Resolved]
  - Inappropriate schedule of product administration [Unknown]

NARRATIVE: CASE EVENT DATE: 20240401
